FAERS Safety Report 4813968-6 (Version None)
Quarter: 2005Q4

REPORT INFORMATION
  Report Type: 
  Country: None (occurrence: None)
  Receive Date: 20051028
  Receipt Date: 20041123
  Transmission Date: 20060501
  Serious: No
  Sender: FDA-Public Use
  Company Number: US-GLAXOSMITHKLINE-A0535015A

PATIENT
  Age: 67 Year
  Sex: Female

DRUGS (3)
  1. SEREVENT [Suspect]
     Indication: ASTHMA
     Dosage: 50MCG TWICE PER DAY
     Route: 055
     Dates: start: 19991101
  2. AZMACORT [Concomitant]
  3. ANTIHYPERTENSIVE [Concomitant]
     Route: 065

REACTIONS (1)
  - COUGH [None]
